FAERS Safety Report 8991076 (Version 1)
Quarter: 2012Q4

REPORT INFORMATION
  Report Type: 
  Country: US (occurrence: None)
  Receive Date: 20121227
  Receipt Date: 20121227
  Transmission Date: 20130627
  Serious: Yes (Hospitalization)
  Sender: FDA-Public Use
  Company Number: None

PATIENT
  Sex: Male
  Weight: 61.7 kg

DRUGS (1)
  1. CISPLATIN [Suspect]
     Dosage: 188mg given on 11/13/2012 and 188mg given on 12/04/12

REACTIONS (2)
  - Dehydration [None]
  - Weight decreased [None]
